FAERS Safety Report 23306982 (Version 1)
Quarter: 2023Q4

REPORT INFORMATION
  Report Type: Report from Study
  Country: IT (occurrence: IT)
  Receive Date: 20231218
  Receipt Date: 20231218
  Transmission Date: 20240109
  Serious: Yes (Other)
  Sender: FDA-Public Use
  Company Number: None

PATIENT
  Age: 71 Year
  Sex: Male
  Weight: 70 kg

DRUGS (1)
  1. PANITUMUMAB [Suspect]
     Active Substance: PANITUMUMAB
     Indication: Colon neoplasm
     Dosage: 420 MG PER CYCLE
     Route: 042

REACTIONS (1)
  - Mucocutaneous toxicity [Not Recovered/Not Resolved]

NARRATIVE: CASE EVENT DATE: 20231120
